FAERS Safety Report 5095476-3 (Version None)
Quarter: 2006Q3

REPORT INFORMATION
  Report Type: 
  Country: None (occurrence: None)
  Receive Date: 20060901
  Receipt Date: 20060901
  Transmission Date: 20061208
  Serious: Yes (Death)
  Sender: FDA-Public Use
  Company Number: None

PATIENT
  Age: 73 Year
  Sex: Male
  Weight: 61.2356 kg

DRUGS (7)
  1. SEROQUEL [Suspect]
     Indication: DRUG USE FOR UNKNOWN INDICATION
     Dates: start: 20060125, end: 20060217
  2. PROZAC [Suspect]
     Indication: DRUG USE FOR UNKNOWN INDICATION
     Dates: start: 20060125, end: 20060217
  3. LEVODOPA [Suspect]
     Indication: DRUG USE FOR UNKNOWN INDICATION
     Dates: start: 20060125, end: 20060217
  4. HALDOL SOLUTAB [Suspect]
     Indication: DRUG USE FOR UNKNOWN INDICATION
     Dates: start: 20060125, end: 20060217
  5. LAMICTAL [Suspect]
     Indication: DRUG USE FOR UNKNOWN INDICATION
     Dates: start: 20060125, end: 20060217
  6. AVELOX [Suspect]
     Indication: DRUG USE FOR UNKNOWN INDICATION
     Dates: start: 20060125, end: 20060217
  7. PRILOSEC [Suspect]
     Indication: DRUG USE FOR UNKNOWN INDICATION
     Dates: start: 20060125, end: 20060217

REACTIONS (1)
  - STEVENS-JOHNSON SYNDROME [None]
